FAERS Safety Report 12853700 (Version 3)
Quarter: 2016Q4

REPORT INFORMATION
  Report Type: Spontaneous
  Country: FR (occurrence: FR)
  Receive Date: 20161017
  Receipt Date: 20161122
  Transmission Date: 20170207
  Serious: Yes (Death, Hospitalization)
  Sender: FDA-Public Use
  Company Number: FR-CELGENEUS-FRA-2016092636

PATIENT
  Age: 73 Year
  Sex: Male

DRUGS (16)
  1. NORMAL SALINE [Concomitant]
     Active Substance: SODIUM CHLORIDE
     Indication: FLUID REPLACEMENT
  2. VENETOCLAX [Suspect]
     Active Substance: VENETOCLAX
     Indication: ACUTE MYELOID LEUKAEMIA
     Route: 048
     Dates: start: 20160623, end: 20160624
  3. ACULAR [Concomitant]
     Active Substance: KETOROLAC TROMETHAMINE
     Indication: UVEITIS
     Dosage: EYE WASH
     Route: 065
     Dates: start: 2008
  4. ZOPHREN [Concomitant]
     Active Substance: ONDANSETRON
     Indication: NEUTROPENIA
     Route: 058
     Dates: start: 20160801, end: 20160801
  5. CEFUROXIME. [Concomitant]
     Active Substance: CEFUROXIME
     Indication: PYREXIA
     Dosage: 5 MILLILITER
     Route: 048
     Dates: start: 20160725
  6. AZACITIDINE INJECTABLE [Suspect]
     Active Substance: AZACITIDINE
     Indication: ACUTE MYELOID LEUKAEMIA
     Dosage: 75 MILLIGRAM/SQ. METER
     Route: 058
     Dates: start: 20160623, end: 20160731
  7. VENETOCLAX [Suspect]
     Active Substance: VENETOCLAX
     Route: 048
     Dates: start: 20160625, end: 20160626
  8. VENETOCLAX [Suspect]
     Active Substance: VENETOCLAX
     Route: 048
     Dates: start: 20160626, end: 20160821
  9. NORMAL SALINE [Concomitant]
     Active Substance: SODIUM CHLORIDE
     Indication: PROPHYLAXIS
     Route: 041
     Dates: start: 20160625, end: 20160628
  10. HYDROXYUREA. [Concomitant]
     Active Substance: HYDROXYUREA
     Indication: ACUTE MYELOID LEUKAEMIA
     Route: 048
     Dates: start: 20160607
  11. ZOPHREN [Concomitant]
     Active Substance: ONDANSETRON
     Indication: PROPHYLAXIS OF NAUSEA AND VOMITING
     Route: 041
     Dates: start: 20160624, end: 20160625
  12. VENETOCLAX [Suspect]
     Active Substance: VENETOCLAX
     Dosage: 1296 MILLIGRAM
     Route: 048
     Dates: start: 20160624, end: 20160625
  13. RASBURICASE [Concomitant]
     Active Substance: RASBURICASE
     Indication: PROPHYLAXIS
     Route: 041
     Dates: start: 20160623, end: 20160623
  14. ZOPHREN [Concomitant]
     Active Substance: ONDANSETRON
     Indication: VOMITING
     Dosage: 2 PERCENT
     Route: 048
     Dates: start: 20160625, end: 20160625
  15. CHIBRO CADRON [Concomitant]
     Active Substance: DEXAMETHASONE SODIUM PHOSPHATE\NEOMYCIN SULFATE
     Indication: UVEITIS
     Dosage: 3000 MILLIGRAM
     Route: 065
     Dates: start: 2008
  16. OFLOXACINE [Concomitant]
     Active Substance: OFLOXACIN
     Indication: PYREXIA
     Route: 048
     Dates: start: 20160725

REACTIONS (3)
  - Pseudomonal sepsis [Fatal]
  - Pseudomonal sepsis [Recovered/Resolved]
  - Pseudomonal sepsis [Recovered/Resolved]

NARRATIVE: CASE EVENT DATE: 20160811
